FAERS Safety Report 18365342 (Version 1)
Quarter: 2020Q4

REPORT INFORMATION
  Report Type: Spontaneous
  Country: US (occurrence: US)
  Receive Date: 20201009
  Receipt Date: 20201009
  Transmission Date: 20210114
  Serious: No
  Sender: FDA-Public Use
  Company Number: None

PATIENT
  Age: 54 Year
  Sex: Female
  Weight: 72 kg

DRUGS (4)
  1. ZINC. [Concomitant]
     Active Substance: ZINC
  2. VITAMIN D [Concomitant]
     Active Substance: VITAMIN D NOS
  3. MYRBETRIQ [Suspect]
     Active Substance: MIRABEGRON
     Indication: HYPERTONIC BLADDER
     Dosage: ?          QUANTITY:1 TABLET(S);?
     Route: 048
     Dates: start: 20200924, end: 20200925
  4. MULTIVITAMINS [Concomitant]
     Active Substance: VITAMINS

REACTIONS (2)
  - Drug intolerance [None]
  - Diarrhoea [None]

NARRATIVE: CASE EVENT DATE: 20200924
